FAERS Safety Report 4640778-5 (Version None)
Quarter: 2005Q2

REPORT INFORMATION
  Report Type: 
  Country: None (occurrence: None)
  Receive Date: 20050420
  Receipt Date: 20050328
  Transmission Date: 20051028
  Serious: Yes (Hospitalization)
  Sender: FDA-Public Use
  Company Number: CM-MERCK-0504USA00592

PATIENT
  Age: 20 Year
  Sex: Male
  Weight: 61 kg

DRUGS (1)
  1. STROMECTOL [Suspect]
     Indication: ONCHOCERCIASIS
     Route: 048
     Dates: start: 20050318

REACTIONS (7)
  - ASTHENIA [None]
  - COMA [None]
  - HEADACHE [None]
  - MYALGIA [None]
  - OCULAR HYPERAEMIA [None]
  - PRURITUS [None]
  - URINARY INCONTINENCE [None]
